FAERS Safety Report 9416216 (Version 1)
Quarter: 2013Q3

REPORT INFORMATION
  Report Type: Spontaneous
  Country: JP (occurrence: JP)
  Receive Date: 20130724
  Receipt Date: 20130724
  Transmission Date: 20140515
  Serious: Yes (Other)
  Sender: FDA-Public Use
  Company Number: JP-009507513-1307JPN011566

PATIENT
  Age: 43 Year
  Sex: Female

DRUGS (1)
  1. TEMODAL [Suspect]
     Dosage: UNK
     Dates: start: 20130701

REACTIONS (1)
  - Hearing impaired [Unknown]
